FAERS Safety Report 7573414-9 (Version None)
Quarter: 2011Q2

REPORT INFORMATION
  Report Type: 
  Country: None (occurrence: None)
  Receive Date: 20110627
  Receipt Date: 20110429
  Transmission Date: 20111010
  Serious: Yes (Other)
  Sender: FDA-Public Use
  Company Number: A0926236A

PATIENT
  Age: 50 Year
  Sex: Male

DRUGS (1)
  1. LAMICTAL XR [Suspect]
     Indication: EPILEPSY
     Route: 048

REACTIONS (2)
  - CONVULSION [None]
  - DRUG INEFFECTIVE [None]
